FAERS Safety Report 9270083 (Version 1)
Quarter: 2013Q2

REPORT INFORMATION
  Report Type: Other
  Country: JP (occurrence: JP)
  Receive Date: 20130503
  Receipt Date: 20130503
  Transmission Date: 20140414
  Serious: Yes (Hospitalization)
  Sender: FDA-Public Use
  Company Number: JP-PURDUE-DEU-2013-0011348

PATIENT
  Age: 86 Year
  Sex: Female

DRUGS (1)
  1. BUPRENORPHINE TRANSDERMAL SYSTEM [Suspect]
     Indication: ARTHRALGIA
     Dosage: 5 MCG, Q1H
     Route: 062

REACTIONS (1)
  - Renal impairment [Unknown]
